FAERS Safety Report 6186723-5 (Version None)
Quarter: 2009Q2

REPORT INFORMATION
  Report Type: 
  Country: None (occurrence: None)
  Receive Date: 20090508
  Receipt Date: 20090427
  Transmission Date: 20091009
  Serious: Yes (Congenital Anomaly, Other)
  Sender: FDA-Public Use
  Company Number: TRP_01056_2008

PATIENT
  Sex: Male

DRUGS (8)
  1. RIBASPHERE [Suspect]
     Indication: HEPATITIS C
     Dosage: (800 MG QD ORAL)
     Route: 048
     Dates: start: 20060501, end: 20070318
  2. PEGASYS [Suspect]
     Indication: HEPATITIS C
     Dosage: (180 ?G 1X/WEEK)
     Dates: start: 20060501, end: 20070318
  3. METHADONE HCL [Concomitant]
  4. ADDERALL 10 [Concomitant]
  5. VALTREX [Concomitant]
  6. ALBUTEROL [Concomitant]
  7. KLONOPIN [Concomitant]
  8. PRENATAL VITAMINS /01549301/ [Concomitant]

REACTIONS (3)
  - FOETAL GROWTH RETARDATION [None]
  - MATERNAL DRUGS AFFECTING FOETUS [None]
  - SINGLE UMBILICAL ARTERY [None]
